FAERS Safety Report 17828282 (Version 1)
Quarter: 2020Q2

REPORT INFORMATION
  Report Type: Report from Study
  Country: US (occurrence: US)
  Receive Date: 20200527
  Receipt Date: 20200527
  Transmission Date: 20200714
  Serious: Yes (Hospitalization)
  Sender: FDA-Public Use
  Company Number: NVSC2020US105038

PATIENT
  Sex: Male
  Weight: 62.6 kg

DRUGS (4)
  1. GSK1120212 [Suspect]
     Active Substance: TRAMETINIB
     Dosage: 30 MILLION INTERNATIONAL UNIT, UNKNOWN
     Route: 048
     Dates: end: 20200421
  2. GSK2118436 [Suspect]
     Active Substance: DABRAFENIB
     Dosage: 4500 MG, UNKNOWN
     Route: 048
     Dates: end: 20200421
  3. GSK1120212 [Suspect]
     Active Substance: TRAMETINIB
     Indication: MALIGNANT MELANOMA
     Dosage: 2 MG, QD
     Route: 048
     Dates: start: 20200128, end: 20200218
  4. GSK2118436 [Suspect]
     Active Substance: DABRAFENIB
     Indication: MALIGNANT MELANOMA
     Dosage: 150 MG, BID
     Route: 048
     Dates: start: 20200128, end: 20200218

REACTIONS (4)
  - Shock [Recovered/Resolved with Sequelae]
  - Haemorrhage intracranial [Recovered/Resolved]
  - Hypocalcaemia [Recovered/Resolved]
  - Pneumonia [Unknown]

NARRATIVE: CASE EVENT DATE: 20200219
